FAERS Safety Report 8543933-7 (Version None)
Quarter: 2012Q3

REPORT INFORMATION
  Report Type: 
  Country: None (occurrence: None)
  Receive Date: 20120727
  Receipt Date: 20120717
  Transmission Date: 20120928
  Serious: Yes (Other)
  Sender: FDA-Public Use
  Company Number: FR-BAYER-2012-071908

PATIENT
  Sex: Female

DRUGS (2)
  1. CLOTRIMAZOLE [Suspect]
  2. CLOTRIMAZOLE [Suspect]

REACTIONS (2)
  - VULVAL HAEMORRHAGE [None]
  - UTERINE HAEMORRHAGE [None]
